FAERS Safety Report 5714433-4 (Version None)
Quarter: 2008Q2

REPORT INFORMATION
  Report Type: 
  Country: None (occurrence: None)
  Receive Date: 20080423
  Receipt Date: 20030522
  Transmission Date: 20081010
  Serious: Yes (Death, Hospitalization)
  Sender: FDA-Public Use
  Company Number: US-ROCHE-337222

PATIENT
  Sex: Male
  Weight: 85.7 kg

DRUGS (10)
  1. ENFUVIRTIDE [Suspect]
     Indication: HIV INFECTION
     Route: 058
     Dates: start: 20030124, end: 20030417
  2. DIFLUCAN [Concomitant]
     Dates: start: 19890101
  3. BACTRIM [Concomitant]
     Dates: start: 19890101
  4. BACTRIM [Concomitant]
     Dates: start: 19890101
  5. ZOVIRAX [Concomitant]
     Dates: start: 19890101
  6. EPIVIR [Concomitant]
     Dates: start: 19990101
  7. TRIZIVIR [Concomitant]
     Dates: start: 20000101
  8. TRIZIVIR [Concomitant]
     Dates: start: 20000101
  9. TRIZIVIR [Concomitant]
     Dates: start: 20000101
  10. PROTONIX [Concomitant]

REACTIONS (2)
  - DEATH [None]
  - PNEUMOCYSTIS JIROVECI PNEUMONIA [None]
